FAERS Safety Report 16287718 (Version 2)
Quarter: 2019Q3

REPORT INFORMATION
  Report Type: Report from Study
  Country: NO (occurrence: NO)
  Receive Date: 20190508
  Receipt Date: 20190701
  Transmission Date: 20191004
  Serious: Yes (Life-Threatening, Other)
  Sender: FDA-Public Use
  Company Number: NO-TESAROUBC-2019-TSO01812-NO

PATIENT

DRUGS (4)
  1. KANDESARTAN [Concomitant]
     Indication: HYPERTENSION
     Dosage: 8/12.5 MG, ONCE DAILY
     Route: 048
  2. NIRAPARIB [Suspect]
     Active Substance: NIRAPARIB
     Indication: OVARIAN CANCER
     Dosage: 300 MG, QD
     Dates: start: 20190327, end: 20190417
  3. ASASANTIN [Concomitant]
     Active Substance: ASPIRIN\DIPYRIDAMOLE
     Indication: THROMBOSIS
     Dosage: 200/25 MG, TWICE DAILY
     Route: 048
  4. NIRAPARIB [Suspect]
     Active Substance: NIRAPARIB
     Dosage: UNK
     Route: 048
     Dates: start: 20190423

REACTIONS (5)
  - Leukopenia [Recovered/Resolved]
  - Myelodysplastic syndrome [Recovered/Resolved]
  - Mucosal haemorrhage [Unknown]
  - Thrombocytopenia [Recovered/Resolved]
  - Neutropenia [Unknown]

NARRATIVE: CASE EVENT DATE: 20190417
